FAERS Safety Report 9747327 (Version 1)
Quarter: 2013Q4

REPORT INFORMATION
  Report Type: Report from Study
  Country: GB (occurrence: GB)
  Receive Date: 20131212
  Receipt Date: 20131212
  Transmission Date: 20140711
  Serious: Yes (Other)
  Sender: FDA-Public Use
  Company Number: GB-ROCHE-1318571

PATIENT
  Age: 46 Year
  Sex: Female

DRUGS (7)
  1. BEVACIZUMAB [Suspect]
     Indication: OVARIAN CANCER
     Route: 065
     Dates: start: 20120930, end: 20121108
  2. BEVACIZUMAB [Suspect]
     Route: 065
     Dates: end: 2013
  3. CAELYX [Concomitant]
  4. CARBOPLATIN [Concomitant]
     Route: 065
     Dates: start: 201206, end: 201208
  5. CARBOPLATIN [Concomitant]
     Route: 065
     Dates: start: 201209
  6. TAXOL [Concomitant]
     Route: 065
     Dates: start: 201206, end: 201208
  7. TAXOL [Concomitant]
     Route: 065
     Dates: start: 201209

REACTIONS (2)
  - Abdominal pain [Unknown]
  - Abdominal distension [Unknown]
